FAERS Safety Report 12977881 (Version 2)
Quarter: 2016Q4

REPORT INFORMATION
  Report Type: Report from Study
  Country: MX (occurrence: MX)
  Receive Date: 20161128
  Receipt Date: 20161202
  Transmission Date: 20170207
  Serious: Yes (Death, Hospitalization, Other)
  Sender: FDA-Public Use
  Company Number: PHHY2016MX162618

PATIENT
  Age: 59 Year
  Sex: Male
  Weight: 75 kg

DRUGS (3)
  1. EXJADE [Suspect]
     Active Substance: DEFERASIROX
     Indication: MYELODYSPLASTIC SYNDROME
     Dosage: 1750 MG, QD (3 OF 500 MG AS REPORTED)
     Route: 048
     Dates: start: 20160706
  2. DANAZOL. [Concomitant]
     Active Substance: DANAZOL
     Indication: PLATELET COUNT DECREASED
     Dosage: 2 DF, UNK
     Route: 048
     Dates: start: 201602
  3. FILGRASTIM [Concomitant]
     Active Substance: FILGRASTIM
     Indication: PRODUCT USED FOR UNKNOWN INDICATION
     Dosage: 300 MCG, UNK
     Route: 058
     Dates: start: 201608

REACTIONS (9)
  - Pyoderma gangrenosum [Fatal]
  - Myelodysplastic syndrome [Fatal]
  - Septic shock [Recovered/Resolved]
  - Abdominal pain upper [Unknown]
  - Cardiac arrest [Unknown]
  - Myalgia [Unknown]
  - Septic shock [Fatal]
  - Blood pressure decreased [Fatal]
  - Blister [Unknown]

NARRATIVE: CASE EVENT DATE: 201607
